FAERS Safety Report 4365443-3 (Version None)
Quarter: 2004Q2

REPORT INFORMATION
  Report Type: 
  Country: None (occurrence: None)
  Receive Date: 20040520
  Receipt Date: 20040512
  Transmission Date: 20050107
  Serious: No
  Sender: FDA-Public Use
  Company Number: 2004UW07155

PATIENT
  Age: 70 Year
  Sex: Female
  Weight: 76.6579 kg

DRUGS (1)
  1. ARIMIDEX [Suspect]
     Indication: BREAST CANCER
     Dosage: 1 MG DAILY PO
     Route: 048
     Dates: start: 20030401, end: 20040408

REACTIONS (2)
  - ASTHENIA [None]
  - CONVULSION [None]
